FAERS Safety Report 7381971-0 (Version None)
Quarter: 2011Q1

REPORT INFORMATION
  Report Type: 
  Country: None (occurrence: None)
  Receive Date: 20110329
  Receipt Date: 20110323
  Transmission Date: 20110831
  Serious: Yes (Other)
  Sender: FDA-Public Use
  Company Number: JP-EISAI INC-E2020-08844-SPO-JP

PATIENT
  Age: 70 Year
  Sex: Female

DRUGS (2)
  1. ARICEPT [Suspect]
     Indication: DEMENTIA ALZHEIMER'S TYPE
     Route: 048
  2. SEROQUEL [Interacting]
     Route: 048
     Dates: start: 20110319

REACTIONS (3)
  - SYNCOPE [None]
  - DRUG INTERACTION [None]
  - BRADYCARDIA [None]
